FAERS Safety Report 15006386 (Version 1)
Quarter: 2018Q2

REPORT INFORMATION
  Report Type: Spontaneous
  Country: US (occurrence: US)
  Receive Date: 20180525
  Receipt Date: 20180525
  Transmission Date: 20180711
  Serious: Yes (Life-Threatening, Hospitalization, Disabling)
  Sender: FDA-Public Use
  Company Number: None

PATIENT
  Age: 46 Year
  Sex: Female
  Weight: 60.75 kg

DRUGS (8)
  1. VITAMIN C [Concomitant]
     Active Substance: ASCORBIC ACID
  2. GREEN TEA CAPSULES [Concomitant]
  3. LORAZEPAM. [Suspect]
     Active Substance: LORAZEPAM
     Indication: ANXIETY
     Route: 048
     Dates: start: 20080801, end: 20170227
  4. MULTIVITAMIN [Concomitant]
     Active Substance: VITAMINS
  5. B6 [Concomitant]
     Active Substance: PYRIDOXINE HYDROCHLORIDE
  6. LORAZEPAM. [Suspect]
     Active Substance: LORAZEPAM
     Indication: INSOMNIA
     Route: 048
     Dates: start: 20080801, end: 20170227
  7. NICOTINAMIDE [Suspect]
     Active Substance: NIACINAMIDE
     Indication: DRUG WITHDRAWAL MAINTENANCE THERAPY
     Dosage: ?          OTHER FREQUENCY:HOURS LONG;?
     Route: 042
     Dates: start: 20170227, end: 20170310
  8. MORINGA CAPSULE [Concomitant]

REACTIONS (9)
  - Inappropriate schedule of drug administration [None]
  - Tardive dyskinesia [None]
  - Brain injury [None]
  - Malaise [None]
  - Dystonia [None]
  - Drug withdrawal syndrome [None]
  - Contraindication to medical treatment [None]
  - Impaired self-care [None]
  - Mental disorder [None]

NARRATIVE: CASE EVENT DATE: 20170301
